FAERS Safety Report 6992267-0 (Version None)
Quarter: 2010Q3

REPORT INFORMATION
  Report Type: 
  Country: None (occurrence: None)
  Receive Date: 20100917
  Receipt Date: 20100913
  Transmission Date: 20110219
  Serious: Yes (Hospitalization, Other)
  Sender: FDA-Public Use
  Company Number: US-TEVA-248237USA

PATIENT
  Age: 59 Year
  Sex: Female

DRUGS (2)
  1. CIMETIDINE 200 MG, 300 MG + 400 MG TABLETS [Suspect]
     Indication: GASTROOESOPHAGEAL REFLUX DISEASE
  2. METFORMIN [Interacting]

REACTIONS (4)
  - DRUG INTERACTION [None]
  - LACTIC ACIDOSIS [None]
  - PANCREATITIS ACUTE [None]
  - RENAL FAILURE ACUTE [None]
